FAERS Safety Report 7912842-6 (Version None)
Quarter: 2011Q4

REPORT INFORMATION
  Report Type: 
  Country: None (occurrence: None)
  Receive Date: 20111114
  Receipt Date: 20111102
  Transmission Date: 20120403
  Serious: No
  Sender: FDA-Public Use
  Company Number: JP-GLAXOSMITHKLINE-B0753587A

PATIENT
  Sex: Female

DRUGS (5)
  1. ESTAZOLAM [Concomitant]
     Dosage: 2MG PER DAY
     Route: 048
     Dates: start: 20110831
  2. LITHIUM CARBONATE [Concomitant]
     Dosage: 600MG PER DAY
     Route: 048
     Dates: start: 20110831, end: 20110913
  3. ZOLPIDEM [Concomitant]
     Dosage: 10MG PER DAY
     Route: 048
     Dates: start: 20110831
  4. UNKNOWN DRUG [Concomitant]
     Route: 048
  5. LAMICTAL [Suspect]
     Indication: BIPOLAR DISORDER
     Dosage: 25MG PER DAY
     Route: 048
     Dates: start: 20110831, end: 20110913

REACTIONS (8)
  - PRURITUS [None]
  - ARTHRALGIA [None]
  - RUBELLA [None]
  - PYREXIA [None]
  - ERYTHEMA [None]
  - VIRAL INFECTION [None]
  - RASH [None]
  - DRUG ERUPTION [None]
